FAERS Safety Report 10384049 (Version 2)
Quarter: 2014Q3

REPORT INFORMATION
  Report Type: Spontaneous
  Country: US (occurrence: None)
  Receive Date: 20140812
  Receipt Date: 20140917
  Transmission Date: 20150326
  Serious: Yes (Other)
  Sender: FDA-Public Use
  Company Number: 2014SA104206

PATIENT
  Age: 33 Year
  Sex: Female
  Weight: 125 kg

DRUGS (2)
  1. NORCO [Concomitant]
     Active Substance: ACETAMINOPHEN\HYDROCODONE BITARTRATE
  2. ICY HOT MEDICATED NO MESS APPLICATOR [Suspect]
     Active Substance: MENTHOL
     Indication: MYALGIA
     Dates: start: 20140730, end: 20140730

REACTIONS (2)
  - Application site burn [None]
  - Thermal burn [None]

NARRATIVE: CASE EVENT DATE: 20140730
